FAERS Safety Report 7171609-X (Version None)
Quarter: 2010Q4

REPORT INFORMATION
  Report Type: 
  Country: None (occurrence: None)
  Receive Date: 20101217
  Receipt Date: 20101130
  Transmission Date: 20110411
  Serious: No
  Sender: FDA-Public Use
  Company Number: US-ROXANE LABORATORIES, INC.-2010-RO-01588RO

PATIENT
  Sex: Male

DRUGS (2)
  1. FLUTICASONE PROPIONATE [Suspect]
     Indication: BRONCHITIS
     Route: 045
     Dates: start: 20101001, end: 20101101
  2. ADVAIR [Concomitant]
     Indication: BRONCHITIS

REACTIONS (3)
  - APHONIA [None]
  - DIZZINESS [None]
  - NAUSEA [None]
